FAERS Safety Report 5918982-5 (Version None)
Quarter: 2008Q4

REPORT INFORMATION
  Report Type: 
  Country: None (occurrence: None)
  Receive Date: 20081015
  Receipt Date: 20081006
  Transmission Date: 20090506
  Serious: Yes (Other)
  Sender: FDA-Public Use
  Company Number: US-JNJFOC-20080804848

PATIENT
  Sex: Female
  Weight: 132.45 kg

DRUGS (6)
  1. REMICADE [Suspect]
     Route: 042
  2. REMICADE [Suspect]
     Indication: RHEUMATOID ARTHRITIS
     Dosage: ON INFLIXIMAB FOR ^A FEW YEARS^
     Route: 042
  3. METHOTREXATE SODIUM [Concomitant]
     Indication: RHEUMATOID ARTHRITIS
     Dosage: FOR YEARS
     Route: 058
  4. PLAQUINEL [Concomitant]
     Indication: RHEUMATOID ARTHRITIS
     Dosage: FOR YEARS
  5. FOLIC ACID [Concomitant]
     Indication: RHEUMATOID ARTHRITIS
     Dosage: FOR YEARS
  6. VICODIN ES [Concomitant]
     Indication: RHEUMATOID ARTHRITIS
     Dosage: AS NEEDED; FOR YEARS

REACTIONS (2)
  - BREAST CANCER METASTATIC [None]
  - METASTASES TO BONE [None]
